FAERS Safety Report 15135301 (Version 17)
Quarter: 2020Q2

REPORT INFORMATION
  Report Type: Spontaneous
  Country: IL (occurrence: IL)
  Receive Date: 20180712
  Receipt Date: 20200624
  Transmission Date: 20200713
  Serious: Yes (Other)
  Sender: FDA-Public Use
  Company Number: IL-PFIZER INC-2018276379

PATIENT
  Age: 72 Year
  Sex: Male

DRUGS (8)
  1. ELELYSO [Suspect]
     Active Substance: TALIGLUCERASE ALFA
     Dosage: 2800/2600 UNITS, ONCE EVERY 3 WEEKS
     Route: 042
  2. ELELYSO [Suspect]
     Active Substance: TALIGLUCERASE ALFA
     Indication: GAUCHER^S DISEASE
     Dosage: 2800/2600 UNITS, ONCE EVERY 3 WEEKS
     Route: 042
  3. ELELYSO [Suspect]
     Active Substance: TALIGLUCERASE ALFA
     Dosage: UNK
     Route: 042
  4. ELELYSO [Suspect]
     Active Substance: TALIGLUCERASE ALFA
     Dosage: 2600/2800 UNITS ONCE IN 3 WEEKS
     Route: 042
  5. ELELYSO [Suspect]
     Active Substance: TALIGLUCERASE ALFA
     Dosage: 2800/2600 UNITS, ONCE EVERY 3 WEEKS
     Route: 042
  6. ELELYSO [Suspect]
     Active Substance: TALIGLUCERASE ALFA
     Dosage: 2800/2600 UNITS, ONCE EVERY 3 WEEKS
     Route: 042
  7. ELELYSO [Suspect]
     Active Substance: TALIGLUCERASE ALFA
     Dosage: 14/13 VIALS ONCE EVERY 3 WEEKS
     Route: 042
  8. ELELYSO [Suspect]
     Active Substance: TALIGLUCERASE ALFA
     Dosage: 2600/2800 UNITS ONCE IN 3 WEEKS
     Route: 042

REACTIONS (12)
  - Nasal cavity cancer [Unknown]
  - Precancerous skin lesion [Unknown]
  - Off label use [Unknown]
  - Anal fissure [Unknown]
  - Heart rate increased [Unknown]
  - Chest pain [Unknown]
  - Somnolence [Unknown]
  - Ocular neoplasm [Unknown]
  - Hypertension [Unknown]
  - Erythema [Recovering/Resolving]
  - Treatment noncompliance [Unknown]
  - Burning sensation [Recovering/Resolving]
